FAERS Safety Report 6269070-2 (Version None)
Quarter: 2009Q3

REPORT INFORMATION
  Report Type: 
  Country: None (occurrence: None)
  Receive Date: 20090714
  Receipt Date: 20090714
  Transmission Date: 20100115
  Serious: Yes (Death, Hospitalization)
  Sender: FDA-Public Use
  Company Number: None

PATIENT
  Age: 76 Year
  Sex: Male
  Weight: 92.0802 kg

DRUGS (5)
  1. HEPARIN [Suspect]
     Dosage: IV
     Route: 042
     Dates: start: 20081229, end: 20081229
  2. HEPARIN [Suspect]
     Dosage: IV
     Route: 042
     Dates: start: 20081230, end: 20081230
  3. HEPARIN [Concomitant]
  4. INTEGRILIN [Concomitant]
  5. PLAVIX [Concomitant]

REACTIONS (1)
  - PROCEDURAL COMPLICATION [None]
